FAERS Safety Report 18902364 (Version 1)
Quarter: 2021Q1

REPORT INFORMATION
  Report Type: Spontaneous
  Country: DE (occurrence: DE)
  Receive Date: 20210217
  Receipt Date: 20210217
  Transmission Date: 20210420
  Serious: Yes (Other)
  Sender: FDA-Public Use
  Company Number: DE-AUROBINDO-AUR-APL-2021-006075

PATIENT
  Age: 84 Year
  Sex: Female
  Weight: 74 kg

DRUGS (17)
  1. OXALIPLATIN. [Suspect]
     Active Substance: OXALIPLATIN
     Indication: COLORECTAL CANCER METASTATIC
     Dosage: 110 MILLIGRAM
     Route: 065
     Dates: start: 20190114
  2. FLUOROURACIL. [Suspect]
     Active Substance: FLUOROURACIL
     Dosage: 2970 MILLIGRAM
     Route: 042
     Dates: start: 20190318
  3. VECTIBIX [Suspect]
     Active Substance: PANITUMUMAB
     Dosage: 420 MILLIGRAM
     Route: 042
     Dates: start: 20190318
  4. OXALIPLATIN. [Suspect]
     Active Substance: OXALIPLATIN
     Dosage: 100 MILLIGRAM
     Route: 065
     Dates: start: 20190211
  5. FLUOROURACIL. [Suspect]
     Active Substance: FLUOROURACIL
     Dosage: 2920 MILLIGRAM
     Route: 042
     Dates: start: 20190211
  6. FOLINIC ACID [Suspect]
     Active Substance: LEUCOVORIN
     Indication: COLORECTAL CANCER METASTATIC
     Dosage: 500 MILLIGRAM
     Route: 065
     Dates: start: 20190114
  7. VECTIBIX [Suspect]
     Active Substance: PANITUMUMAB
     Dosage: 400 MILLIGRAM
     Route: 042
     Dates: start: 20190211
  8. FOLINIC ACID [Suspect]
     Active Substance: LEUCOVORIN
     Dosage: 490 MILLIGRAM
     Route: 065
     Dates: start: 20190211
  9. VECTIBIX [Suspect]
     Active Substance: PANITUMUMAB
     Dosage: 410 MILLIGRAM
     Route: 042
     Dates: start: 20190304
  10. VECTIBIX [Suspect]
     Active Substance: PANITUMUMAB
     Dosage: 410 MILLIGRAM
     Route: 042
     Dates: start: 20190506
  11. VECTIBIX [Suspect]
     Active Substance: PANITUMUMAB
     Indication: COLORECTAL CANCER METASTATIC
     Dosage: 430 MILLIGRAM
     Route: 042
     Dates: start: 20190114
  12. FOLINIC ACID [Suspect]
     Active Substance: LEUCOVORIN
     Dosage: 500 MILLIGRAM
     Route: 065
     Dates: start: 20190415
  13. FOLINIC ACID [Suspect]
     Active Substance: LEUCOVORIN
     Dosage: 490 MILLIGRAM
     Route: 065
     Dates: start: 20190506
  14. FLUOROURACIL. [Suspect]
     Active Substance: FLUOROURACIL
     Dosage: 2960 MILLIGRAM
     Route: 042
     Dates: start: 20190506
  15. ASS?RATIOPHARM [Concomitant]
     Active Substance: ASPIRIN
     Indication: CEREBROVASCULAR ACCIDENT
     Dosage: 100 GRAM, ONCE A DAY
     Route: 048
  16. FLUOROURACIL. [Suspect]
     Active Substance: FLUOROURACIL
     Indication: COLORECTAL CANCER METASTATIC
     Dosage: 2990 MILLIGRAM
     Route: 042
     Dates: start: 20190114
  17. FLUOROURACIL. [Suspect]
     Active Substance: FLUOROURACIL
     Dosage: 2940 MILLIGRAM
     Route: 042
     Dates: start: 20190304

REACTIONS (1)
  - Erysipelas [Recovered/Resolved]

NARRATIVE: CASE EVENT DATE: 20190513
